FAERS Safety Report 7537171-4 (Version None)
Quarter: 2011Q2

REPORT INFORMATION
  Report Type: 
  Country: None (occurrence: None)
  Receive Date: 20110609
  Receipt Date: 20110603
  Transmission Date: 20111010
  Serious: Yes (Other)
  Sender: FDA-Public Use
  Company Number: GB-PFIZER INC-2011120620

PATIENT
  Sex: Male

DRUGS (1)
  1. LIPITOR [Suspect]
     Dosage: 10 MG, UNK
     Dates: end: 20110529

REACTIONS (5)
  - LIMB DISCOMFORT [None]
  - HYPOACUSIS [None]
  - PARAESTHESIA [None]
  - VISION BLURRED [None]
  - HYPOAESTHESIA [None]
